FAERS Safety Report 7971283-6 (Version None)
Quarter: 2011Q4

REPORT INFORMATION
  Report Type: 
  Country: None (occurrence: None)
  Receive Date: 20111212
  Receipt Date: 20110330
  Transmission Date: 20120403
  Serious: Yes (Other)
  Sender: FDA-Public Use
  Company Number: US-BRISTOL-MYERS SQUIBB COMPANY-15646813

PATIENT
  Sex: Female

DRUGS (1)
  1. IXEMPRA KIT [Suspect]
     Dosage: 16MG/M2 OVER 1 HR WEEKLY PREVIOUSLY 40MG/M2 OVER 3 HRS EVERY 3 WKS

REACTIONS (1)
  - INFUSION RELATED REACTION [None]
